FAERS Safety Report 23278781 (Version 1)
Quarter: 2023Q4

REPORT INFORMATION
  Report Type: Spontaneous
  Country: UA (occurrence: UA)
  Receive Date: 20231208
  Receipt Date: 20231208
  Transmission Date: 20240110
  Serious: Yes (Death, Other)
  Sender: FDA-Public Use
  Company Number: UA-SERVIER-S23012473

PATIENT
  Age: 80 Year
  Sex: Male

DRUGS (2)
  1. LONSURF [Suspect]
     Active Substance: TIPIRACIL HYDROCHLORIDE\TRIFLURIDINE
     Indication: Adenocarcinoma gastric
     Dosage: 30 MG/M2, BID, ON DAYS 1-5 AND 8-12 OF EVERY 28-DAY CYCLE
     Route: 048
     Dates: start: 202212, end: 20230711
  2. DEXALGIN [Concomitant]
     Indication: Pain
     Dosage: 1 DF, QD
     Route: 048

REACTIONS (7)
  - Condition aggravated [Fatal]
  - Leukopenia [Recovered/Resolved]
  - Pain [Unknown]
  - Asthenia [Unknown]
  - Anaemia [Unknown]
  - Asthenia [Unknown]
  - Product use issue [Recovered/Resolved]

NARRATIVE: CASE EVENT DATE: 20230101
